FAERS Safety Report 7563753-X (Version None)
Quarter: 2011Q2

REPORT INFORMATION
  Report Type: 
  Country: None (occurrence: None)
  Receive Date: 20110622
  Receipt Date: 20110613
  Transmission Date: 20111010
  Serious: Yes (Hospitalization)
  Sender: FDA-Public Use
  Company Number: JP-MERCK-1106USA02231

PATIENT
  Age: 73 Year
  Sex: Male

DRUGS (4)
  1. METFORMIN HCL [Suspect]
     Route: 048
     Dates: end: 20110603
  2. NOVORAPID [Suspect]
     Indication: DIABETES MELLITUS
     Route: 058
     Dates: end: 20110415
  3. NOVORAPID [Suspect]
     Route: 058
     Dates: start: 20110603
  4. JANUVIA [Suspect]
     Indication: DIABETES MELLITUS
     Route: 048
     Dates: start: 20110415, end: 20110603

REACTIONS (2)
  - INFECTED EPIDERMAL CYST [None]
  - ACUTE LYMPHOCYTIC LEUKAEMIA [None]
